FAERS Safety Report 17379129 (Version 1)
Quarter: 2020Q1

REPORT INFORMATION
  Report Type: Spontaneous
  Country: US (occurrence: US)
  Receive Date: 20200206
  Receipt Date: 20200206
  Transmission Date: 20200409
  Serious: No
  Sender: FDA-Public Use
  Company Number: US-ABBVIE-19K-163-2678937-00

PATIENT
  Age: 40 Year

DRUGS (1)
  1. HUMIRA [Suspect]
     Active Substance: ADALIMUMAB
     Indication: ERYTHEMA ELEVATUM DIUTINUM
     Route: 058
     Dates: start: 201811

REACTIONS (3)
  - Injection site haemorrhage [Recovered/Resolved]
  - Off label use [Not Recovered/Not Resolved]
  - Wrong technique in product usage process [Unknown]

NARRATIVE: CASE EVENT DATE: 201811
